FAERS Safety Report 18110294 (Version 1)
Quarter: 2020Q3

REPORT INFORMATION
  Report Type: Spontaneous
  Country: US (occurrence: US)
  Receive Date: 20200804
  Receipt Date: 20200804
  Transmission Date: 20201103
  Serious: Yes (Disabling, Other)
  Sender: FDA-Public Use
  Company Number: US-PURDUE-USA-2020-0159536

PATIENT
  Age: 58 Year
  Sex: Male

DRUGS (2)
  1. OXYCONTIN [Suspect]
     Active Substance: OXYCODONE HYDROCHLORIDE
     Indication: BACK PAIN
     Dosage: 160 MG, Q12H
     Route: 048
  2. HYDROCODONE BITARTRATE AND ACETAMINOPHEN [Suspect]
     Active Substance: ACETAMINOPHEN\HYDROCODONE BITARTRATE
     Indication: BACK PAIN
     Dosage: UNKNOWN
     Route: 065

REACTIONS (10)
  - Brain injury [Unknown]
  - Cognitive disorder [Unknown]
  - Overdose [Unknown]
  - Disability [Unknown]
  - Loss of employment [Unknown]
  - Imprisonment [Recovered/Resolved]
  - Drug dependence [Unknown]
  - Coma [Recovered/Resolved]
  - Cerebrovascular accident [Unknown]
  - Mobility decreased [Unknown]
